FAERS Safety Report 5203205-5 (Version None)
Quarter: 2006Q4

REPORT INFORMATION
  Report Type: 
  Country: None (occurrence: None)
  Receive Date: 20061016
  Receipt Date: 20060203
  Transmission Date: 20070319
  Serious: Yes (Other)
  Sender: FDA-Public Use
  Company Number: 2006018710

PATIENT
  Age: 57 Year
  Sex: Female
  Weight: 140.6151 kg

DRUGS (9)
  1. NEURONTIN [Suspect]
     Indication: NEUROPATHY PERIPHERAL
     Dosage: 4 IN 1 D, ORAL
     Route: 048
     Dates: start: 20051201, end: 20060101
  2. OXYCONTIN [Concomitant]
  3. PREVACID [Concomitant]
  4. ACCUPRIL [Concomitant]
  5. LORTAB [Concomitant]
  6. ALPRAZOLAM [Concomitant]
  7. RIBELFAN (AMINOPHENAZONE, NOSCAPINE, QUININE, SULFAMETHOXYPYRIDAZINE) [Concomitant]
  8. PRAVACHOL [Concomitant]
  9. VERAPAMIL [Concomitant]

REACTIONS (10)
  - ASTHENIA [None]
  - CONFUSIONAL STATE [None]
  - FEAR [None]
  - INCREASED APPETITE [None]
  - MOOD SWINGS [None]
  - SKIN EXFOLIATION [None]
  - SUICIDAL IDEATION [None]
  - THINKING ABNORMAL [None]
  - TREMOR [None]
  - WEIGHT INCREASED [None]
